FAERS Safety Report 22525257 (Version 1)
Quarter: 2023Q2

REPORT INFORMATION
  Report Type: Spontaneous
  Country: RU (occurrence: RU)
  Receive Date: 20230606
  Receipt Date: 20230606
  Transmission Date: 20230722
  Serious: Yes (Hospitalization, Other)
  Sender: FDA-Public Use
  Company Number: None

PATIENT
  Age: 12 Year
  Sex: Male
  Weight: 36 kg

DRUGS (1)
  1. ULTRAVIST [Suspect]
     Active Substance: IOPROMIDE
     Indication: Pancreatogenous diabetes
     Dosage: 37 ML, ONCE, 37 ML INTRAVENOUSLY [IV] BY BOLUS INFUSION
     Route: 042
     Dates: start: 20230505, end: 20230505

REACTIONS (1)
  - Pancreatogenous diabetes [Recovering/Resolving]

NARRATIVE: CASE EVENT DATE: 20230505
